FAERS Safety Report 10055864 (Version 3)
Quarter: 2014Q2

REPORT INFORMATION
  Report Type: Report from Study
  Country: LB (occurrence: LB)
  Receive Date: 20140403
  Receipt Date: 20140611
  Transmission Date: 20141212
  Serious: Yes (Hospitalization, Other)
  Sender: FDA-Public Use
  Company Number: PHHY2012LB054725

PATIENT
  Age: 55 Year
  Sex: Male

DRUGS (5)
  1. GLIVEC [Suspect]
     Indication: CHRONIC MYELOID LEUKAEMIA
     Dosage: 600 MG, QD
     Route: 048
     Dates: start: 2002
  2. LOPID [Concomitant]
     Dosage: 1 DF, QD
     Route: 048
  3. METFORMIN [Concomitant]
     Dosage: 1 DF, QD
     Route: 048
     Dates: start: 2002
  4. PARIET [Concomitant]
     Dosage: 1 DF, QD
     Route: 048
     Dates: start: 2008
  5. ENALAPRIL [Concomitant]
     Dosage: 1 DF, QD
     Route: 048

REACTIONS (7)
  - Bladder cancer [Not Recovered/Not Resolved]
  - Haematuria [Recovering/Resolving]
  - Second primary malignancy [Unknown]
  - Abdominal pain upper [Recovered/Resolved]
  - Drug ineffective [Not Recovered/Not Resolved]
  - Drug resistance [Unknown]
  - Myalgia [Not Recovered/Not Resolved]
